FAERS Safety Report 24904607 (Version 1)
Quarter: 2025Q1

REPORT INFORMATION
  Report Type: Spontaneous
  Country: US (occurrence: US)
  Receive Date: 20250130
  Receipt Date: 20250130
  Transmission Date: 20250409
  Serious: No
  Sender: Tarsus Pharmaceuticals
  Company Number: US-TARSUS PHARMACEUTICALS-TSP-US-2024-000529

PATIENT
  Sex: Female

DRUGS (1)
  1. XDEMVY [Suspect]
     Active Substance: LOTILANER
     Indication: Blepharitis
     Dosage: 1 DROP, BID INTO BOTH EYES
     Route: 047
     Dates: start: 20240404, end: 20240516

REACTIONS (2)
  - Therapeutic response decreased [Unknown]
  - Product use issue [Unknown]
